FAERS Safety Report 4449959-7 (Version None)
Quarter: 2004Q3

REPORT INFORMATION
  Report Type: 
  Country: None (occurrence: None)
  Receive Date: 20040915
  Receipt Date: 20040907
  Transmission Date: 20050211
  Serious: Yes (Hospitalization)
  Sender: FDA-Public Use
  Company Number: PHEH2004US09583

PATIENT
  Age: 55 Year
  Sex: Female

DRUGS (5)
  1. FEMARA [Suspect]
     Indication: BREAST CANCER
     Dosage: 2.5 MG, QD
     Dates: start: 20020101, end: 20030301
  2. FEMARA [Suspect]
     Dosage: 2.5 MG, QD
     Route: 048
     Dates: start: 20030701, end: 20031201
  3. IMDUR [Concomitant]
  4. VASOTEC [Concomitant]
  5. ATENOLOL [Concomitant]

REACTIONS (2)
  - HEART RATE INCREASED [None]
  - METASTASES TO LUNG [None]
